FAERS Safety Report 8462735-3 (Version None)
Quarter: 2012Q2

REPORT INFORMATION
  Report Type: 
  Country: None (occurrence: None)
  Receive Date: 20120618
  Receipt Date: 20120618
  Transmission Date: 20120825
  Serious: Yes (Other)
  Sender: FDA-Public Use
  Company Number: None

PATIENT
  Age: 72 Year
  Sex: Female

DRUGS (1)
  1. PREDNISONE [Suspect]
     Indication: ASTHMA
     Dosage: 20MG TWICE DAILY PO
     Route: 048
     Dates: start: 20120605, end: 20120611

REACTIONS (1)
  - VISION BLURRED [None]
